FAERS Safety Report 12618350 (Version 1)
Quarter: 2016Q3

REPORT INFORMATION
  Report Type: Spontaneous
  Country: GB (occurrence: GB)
  Receive Date: 20160803
  Receipt Date: 20160803
  Transmission Date: 20161109
  Serious: Yes (Other)
  Sender: FDA-Public Use
  Company Number: GB-WATSON-2016-16963

PATIENT
  Age: 48 Year
  Sex: Female

DRUGS (1)
  1. RAMIPRIL (UNKNOWN) [Suspect]
     Active Substance: RAMIPRIL
     Indication: HYPERTENSION
     Dosage: UNK UNK, UNKNOWN
     Route: 065
     Dates: start: 2015

REACTIONS (5)
  - Dizziness [Unknown]
  - Depression [Unknown]
  - Psychotic disorder [Unknown]
  - Malaise [Unknown]
  - Weight increased [Unknown]
